FAERS Safety Report 4530703-X (Version None)
Quarter: 2004Q4

REPORT INFORMATION
  Report Type: 
  Country: None (occurrence: None)
  Receive Date: 20041217
  Receipt Date: 20041028
  Transmission Date: 20050328
  Serious: Yes (Disabling)
  Sender: FDA-Public Use
  Company Number: GB-GLAXOSMITHKLINE-B0349691A

PATIENT
  Age: 66 Year
  Sex: Female

DRUGS (5)
  1. SEREVENT [Suspect]
     Indication: ASTHMA
     Dosage: 2PUFF TWICE PER DAY
     Route: 055
     Dates: start: 20030823
  2. BUDESONIDE [Concomitant]
     Indication: ASTHMA
     Dosage: 2PUFF TWICE PER DAY
     Route: 055
     Dates: start: 19960209
  3. BECLOMETHASONE DIPROPIONATE [Concomitant]
     Indication: RHINITIS
     Route: 055
     Dates: start: 19970521
  4. NIFEDEPINE RETARD [Concomitant]
     Dosage: 30MG PER DAY
     Route: 048
     Dates: start: 20030804
  5. ALBUTEROL [Concomitant]
     Indication: ASTHMA
     Dosage: 100MG AS REQUIRED
     Route: 055
     Dates: start: 20030624

REACTIONS (3)
  - ARTHRALGIA [None]
  - BLOOD CREATINE PHOSPHOKINASE INCREASED [None]
  - MUSCLE CRAMP [None]
